FAERS Safety Report 8837058 (Version 8)
Quarter: 2013Q1

REPORT INFORMATION
  Report Type: Report from Study
  Country: FR (occurrence: FR)
  Receive Date: 20121012
  Receipt Date: 20130222
  Transmission Date: 20140127
  Serious: Yes (Death, Other)
  Sender: FDA-Public Use
  Company Number: FR-TEVA-363490USA

PATIENT
  Age: 65 Year
  Sex: Male
  Weight: 57 kg

DRUGS (20)
  1. TREANDA [Suspect]
     Indication: MANTLE CELL LYMPHOMA
     Dosage: REGIMEN #1
     Route: 042
     Dates: start: 20120622, end: 20120918
  2. TREANDA [Suspect]
     Dosage: REGIMEN #2
     Route: 042
  3. TREANDA [Suspect]
     Dosage: REGIMEN #3
     Route: 042
     Dates: start: 20120821
  4. VELCADE [Suspect]
     Indication: MANTLE CELL LYMPHOMA
     Dosage: REGIMEN #1
     Route: 058
     Dates: start: 20120622
  5. VELCADE [Suspect]
     Dosage: REGIMEN #2
     Route: 058
  6. VELCADE [Suspect]
     Dosage: REGIMEN #3
     Route: 058
     Dates: start: 20120821
  7. DEXAMETHASONE [Suspect]
     Indication: MANTLE CELL LYMPHOMA
     Dosage: REGIMEN #1, CYCLIC
     Route: 041
     Dates: start: 20120622
  8. DEXAMETHASONE [Suspect]
     Dosage: REGIMEN #2, CYCLIC
     Route: 041
  9. DEXAMETHASONE [Suspect]
     Dosage: REGIMEN #3, CYCLIC
     Route: 041
  10. MABTHERA [Suspect]
     Indication: MANTLE CELL LYMPHOMA
     Dosage: REGIMEN #1
     Route: 041
     Dates: start: 20120622
  11. MABTHERA [Suspect]
     Dosage: REGIMEN #2
     Route: 041
  12. MABTHERA [Suspect]
     Dosage: REGIMEN #3
     Route: 041
     Dates: start: 20120821
  13. VALACICLOVIR [Concomitant]
     Dates: start: 20120622
  14. INEGY [Concomitant]
     Indication: DEVICE OCCLUSION
     Dates: start: 20030911
  15. ZOPICLONE [Concomitant]
     Dates: start: 200309
  16. CLOPIDOGREL [Concomitant]
     Indication: MYOCARDIAL INFARCTION
     Dates: start: 20030911
  17. KARDEGIC [Concomitant]
     Indication: STENT PLACEMENT
     Dates: start: 20030911
  18. BISOPROLOL HEMIFUMARATE [Concomitant]
     Indication: STENT PLACEMENT
     Dates: start: 200303
  19. POLARAMINE [Concomitant]
     Dosage: 500 MG
     Dates: start: 20120622
  20. DAFALGAN [Concomitant]
     Dates: start: 20120622

REACTIONS (2)
  - Leukoencephalopathy [Fatal]
  - Expressive language disorder [Unknown]
